FAERS Safety Report 13589055 (Version 1)
Quarter: 2017Q2

REPORT INFORMATION
  Report Type: Spontaneous
  Country: US (occurrence: US)
  Receive Date: 20170526
  Receipt Date: 20170526
  Transmission Date: 20170830
  Serious: Yes (Life-Threatening, Other)
  Sender: FDA-Public Use
  Company Number: None

PATIENT
  Age: 69 Year
  Sex: Female
  Weight: 90 kg

DRUGS (2)
  1. METOPROLOL. [Concomitant]
     Active Substance: METOPROLOL
  2. LISINOPRIL. [Suspect]
     Active Substance: LISINOPRIL
     Indication: HYPERTENSION
     Route: 048
     Dates: start: 20170523, end: 20170524

REACTIONS (9)
  - Abdominal pain upper [None]
  - Lethargy [None]
  - Hyperhidrosis [None]
  - Migraine [None]
  - Manufacturing materials issue [None]
  - Asthenia [None]
  - Palpitations [None]
  - Product size issue [None]
  - Nausea [None]

NARRATIVE: CASE EVENT DATE: 20170523
